FAERS Safety Report 24925766 (Version 2)
Quarter: 2025Q1

REPORT INFORMATION
  Report Type: Spontaneous
  Country: US (occurrence: US)
  Receive Date: 20250205
  Receipt Date: 20250224
  Transmission Date: 20250409
  Serious: Yes (Hospitalization, Other)
  Sender: ABBVIE
  Company Number: US-ABBVIE-6114937

PATIENT
  Age: 76 Year
  Sex: Male
  Weight: 95.707 kg

DRUGS (2)
  1. RINVOQ [Suspect]
     Active Substance: UPADACITINIB
     Indication: Colitis ulcerative
     Dosage: FORM STRENGTH-15 MILLIGRAM, LAST ADMIN DATE-2025
     Route: 048
     Dates: start: 20250131
  2. RINVOQ [Suspect]
     Active Substance: UPADACITINIB
     Indication: Colitis ulcerative
     Dosage: FORM STRENGTH-30 MILLIGRAM LAST ADMIN-2025-01
     Route: 048
     Dates: start: 20250114

REACTIONS (2)
  - Transient ischaemic attack [Unknown]
  - Occipital lobe stroke [Unknown]

NARRATIVE: CASE EVENT DATE: 20250101
